FAERS Safety Report 16872507 (Version 2)
Quarter: 2019Q4

REPORT INFORMATION
  Report Type: Spontaneous
  Country: US (occurrence: US)
  Receive Date: 20191001
  Receipt Date: 20191015
  Transmission Date: 20200122
  Serious: Yes (Hospitalization, Other)
  Sender: FDA-Public Use
  Company Number: US-ADVANZ PHARMA-201909000729

PATIENT

DRUGS (1)
  1. DIGOXIN. [Suspect]
     Active Substance: DIGOXIN
     Dosage: 250 UG
     Route: 008

REACTIONS (3)
  - Accidental exposure to product [Unknown]
  - Status epilepticus [Recovering/Resolving]
  - Meningitis chemical [Recovering/Resolving]
